FAERS Safety Report 23387848 (Version 1)
Quarter: 2024Q1

REPORT INFORMATION
  Report Type: Spontaneous
  Country: US (occurrence: US)
  Receive Date: 20240110
  Receipt Date: 20240110
  Transmission Date: 20240410
  Serious: Yes (Other)
  Sender: FDA-Public Use
  Company Number: US-AVADEL CNS PHARMACEUTICALS, LLC-2023AVA00498

PATIENT
  Sex: Female
  Weight: 43.537 kg

DRUGS (10)
  1. LUMRYZ [Suspect]
     Active Substance: SODIUM OXYBATE
     Indication: Narcolepsy
     Dosage: 4.5 G, ONCE NIGHTLY AT BEDTIME
     Route: 048
     Dates: start: 20231129, end: 20231206
  2. LUMRYZ [Suspect]
     Active Substance: SODIUM OXYBATE
     Indication: Cataplexy
  3. LUMRYZ [Suspect]
     Active Substance: SODIUM OXYBATE
     Indication: Narcolepsy
     Dosage: 6 G, ONCE NIGHTLY AT BEDTIME
     Route: 048
     Dates: start: 20231207, end: 20231208
  4. LUMRYZ [Suspect]
     Active Substance: SODIUM OXYBATE
     Indication: Cataplexy
  5. QULIPTA [Concomitant]
     Active Substance: ATOGEPANT
  6. UBRELVY [Concomitant]
     Active Substance: UBROGEPANT
  7. DICYCLOMINE HYDROCHLORIDE [Concomitant]
     Active Substance: DICYCLOMINE HYDROCHLORIDE
  8. LINZESS [Concomitant]
     Active Substance: LINACLOTIDE
     Dosage: UNK, AS NEEDED
  9. PROTONIX [Concomitant]
     Active Substance: PANTOPRAZOLE SODIUM
  10. MODAFINIL [Concomitant]
     Active Substance: MODAFINIL

REACTIONS (22)
  - Blood glucose decreased [Recovered/Resolved]
  - Hypotension [Recovering/Resolving]
  - Seizure [Recovered/Resolved]
  - Blindness [Recovered/Resolved]
  - Dehydration [Unknown]
  - Hypoaesthesia [Not Recovered/Not Resolved]
  - Nerve compression [Not Recovered/Not Resolved]
  - Asthenia [Unknown]
  - Speech disorder [Unknown]
  - Feeding disorder [Unknown]
  - Cerebral disorder [Unknown]
  - Gait inability [Unknown]
  - Pain in extremity [Unknown]
  - Vision blurred [Not Recovered/Not Resolved]
  - Nocturia [Not Recovered/Not Resolved]
  - Vomiting [Unknown]
  - Abdominal pain upper [Unknown]
  - Arthralgia [Unknown]
  - Decreased appetite [Unknown]
  - Nausea [Unknown]
  - Disturbance in attention [Unknown]
  - Therapeutic product effect delayed [Recovered/Resolved]

NARRATIVE: CASE EVENT DATE: 20230101
